FAERS Safety Report 7465377 (Version 3)
Quarter: 2013Q4

REPORT INFORMATION
  Report Type: Spontaneous
  Country: US (occurrence: US)
  Receive Date: 20100712
  Receipt Date: 20131220
  Transmission Date: 20140711
  Serious: No
  Sender: FDA-Public Use
  Company Number: US-JNJFOC-20100700485

PATIENT
  Age: 43 Year
  Sex: Female
  Weight: 92.08 kg

DRUGS (10)
  1. DURAGESIC [Suspect]
     Indication: NEURALGIA
     Dosage: NDC# 50458-092
     Route: 062
     Dates: start: 201003
  2. DURAGESIC [Suspect]
     Indication: NEURALGIA
     Dosage: NDC# 50458-0092-05
     Route: 062
     Dates: start: 201004
  3. DURAGESIC [Suspect]
     Indication: NERVE INJURY
     Dosage: NDC# 50458-092
     Route: 062
     Dates: start: 201003
  4. DURAGESIC [Suspect]
     Indication: NERVE INJURY
     Dosage: NDC# 50458-0092-05
     Route: 062
     Dates: start: 201004
  5. PAXIL [Concomitant]
     Indication: DEPRESSION
     Route: 048
     Dates: start: 2009
  6. VALIUM [Concomitant]
     Indication: MUSCLE RELAXANT THERAPY
     Route: 048
     Dates: start: 2007
  7. VICODIN [Concomitant]
     Indication: NEUROLOGICAL INFECTION
     Route: 048
  8. GLIPIZIDE [Concomitant]
     Indication: DIABETES MELLITUS
     Route: 048
     Dates: start: 2007
  9. GLIPIZIDE [Concomitant]
     Indication: DIABETES MELLITUS
     Route: 048
     Dates: start: 2008
  10. NORVASC [Concomitant]
     Indication: HYPERTENSION
     Route: 048
     Dates: start: 2007

REACTIONS (9)
  - Product quality issue [Unknown]
  - Wrong technique in drug usage process [Recovered/Resolved]
  - Product quality issue [Not Recovered/Not Resolved]
  - Neuralgia [Not Recovered/Not Resolved]
  - Wrong technique in drug usage process [Recovered/Resolved]
  - Treatment noncompliance [Not Recovered/Not Resolved]
  - Wrong technique in drug usage process [Not Recovered/Not Resolved]
  - Neurological infection [Not Recovered/Not Resolved]
  - Product quality issue [Not Recovered/Not Resolved]
